FAERS Safety Report 10489233 (Version 1)
Quarter: 2014Q3

REPORT INFORMATION
  Report Type: Spontaneous
  Country: US (occurrence: None)
  Receive Date: 20140815
  Receipt Date: 20140815
  Transmission Date: 20150326
  Serious: Yes (Life-Threatening, Hospitalization, Other)
  Sender: FDA-Public Use
  Company Number: ADR-2013-02133

PATIENT
  Age: 57 Year
  Sex: Male

DRUGS (1)
  1. LIORESAL [Suspect]
     Active Substance: BACLOFEN
     Indication: MUSCLE SPASTICITY

REACTIONS (8)
  - Urethral discharge [None]
  - Mental status changes [None]
  - Respiratory depression [None]
  - Urosepsis [None]
  - Drug withdrawal syndrome [None]
  - Lethargy [None]
  - Renal failure [None]
  - Overdose [None]
